FAERS Safety Report 4308683-1 (Version None)
Quarter: 2004Q1

REPORT INFORMATION
  Report Type: 
  Country: None (occurrence: None)
  Receive Date: 20040301
  Receipt Date: 20040301
  Transmission Date: 20041129
  Serious: Yes (Hospitalization)
  Sender: FDA-Public Use
  Company Number: None

PATIENT
  Age: 37 Year
  Sex: Female
  Weight: 63.05 kg

DRUGS (1)
  1. WARFARIN SODIUM [Suspect]
     Indication: ATRIAL FIBRILLATION
     Dosage: 2.5 MG PO QD
     Route: 048
     Dates: start: 20030423, end: 20031003

REACTIONS (4)
  - DIARRHOEA [None]
  - JAUNDICE CHOLESTATIC [None]
  - NAUSEA [None]
  - VOMITING [None]
